FAERS Safety Report 15339334 (Version 1)
Quarter: 2018Q3

REPORT INFORMATION
  Report Type: Spontaneous
  Country: US (occurrence: US)
  Receive Date: 20180831
  Receipt Date: 20180831
  Transmission Date: 20181010
  Serious: Yes (Death, Hospitalization)
  Sender: FDA-Public Use
  Company Number: US-PFIZER INC-2018345573

PATIENT
  Age: 80 Year
  Sex: Male

DRUGS (5)
  1. PROPRANOLOL HYDROCHLORIDE. [Concomitant]
     Active Substance: PROPRANOLOL HYDROCHLORIDE
     Indication: CHEST PAIN
     Dosage: 40 MG, 4X/DAY
  2. ISOSORBIDE DINITRATE. [Concomitant]
     Active Substance: ISOSORBIDE DINITRATE
     Indication: CHEST PAIN
     Dosage: 10 MG, 4X/DAY
     Route: 060
  3. NITROGLYCERIN. [Suspect]
     Active Substance: NITROGLYCERIN
     Indication: CHEST PAIN
     Dosage: 100 DF (0.4 MG TABLETS BEFORE ADMISSION)
     Route: 060
  4. NITROGLYCERIN. [Suspect]
     Active Substance: NITROGLYCERIN
     Indication: CHEST PAIN
     Dosage: UNK, 1X/DAY (OINTMENT, 5.1 CM (2IN) AT BEDTIME)
     Route: 061
  5. FUROSEMIDE. [Concomitant]
     Active Substance: FUROSEMIDE
     Indication: MYOCARDIAL INFARCTION
     Dosage: 40 MG, DAILY

REACTIONS (2)
  - Accidental overdose [Fatal]
  - Methaemoglobinaemia [Fatal]
